FAERS Safety Report 10770360 (Version 1)
Quarter: 2015Q1

REPORT INFORMATION
  Report Type: Other
  Country: US (occurrence: US)
  Receive Date: 20150206
  Receipt Date: 20150206
  Transmission Date: 20150721
  Serious: Yes (Death)
  Sender: FDA-Public Use
  Company Number: US-FRI-1000074217

PATIENT
  Age: 61 Year
  Sex: Female

DRUGS (7)
  1. GLIBENCLAMIDE [Suspect]
     Active Substance: GLYBURIDE
  2. LEVOTHROID [Suspect]
     Active Substance: LEVOTHYROXINE SODIUM
  3. LISINOPRIL. [Suspect]
     Active Substance: LISINOPRIL
  4. FAMOTIDINE. [Suspect]
     Active Substance: FAMOTIDINE
  5. VENLAFAXINE [Suspect]
     Active Substance: VENLAFAXINE HYDROCHLORIDE
  6. METFORMIN [Suspect]
     Active Substance: METFORMIN HYDROCHLORIDE
  7. ATORVASTATIN [Suspect]
     Active Substance: ATORVASTATIN

REACTIONS (1)
  - Completed suicide [Fatal]
